FAERS Safety Report 12525194 (Version 2)
Quarter: 2016Q3

REPORT INFORMATION
  Report Type: Report from Study
  Country: DE (occurrence: DE)
  Receive Date: 20160704
  Receipt Date: 20160719
  Transmission Date: 20161109
  Serious: Yes (Hospitalization, Other)
  Sender: FDA-Public Use
  Company Number: DE-CELGENEUS-DEU-2016062973

PATIENT
  Age: 68 Year
  Sex: Female
  Weight: 50 kg

DRUGS (10)
  1. THYROXIN [Concomitant]
     Active Substance: LEVOTHYROXINE
     Indication: THYROID DISORDER
     Route: 065
  2. EVEROLIMUS [Concomitant]
     Active Substance: EVEROLIMUS
     Indication: PRODUCT USED FOR UNKNOWN INDICATION
     Route: 065
  3. AZACITIDINE INJECTABLE [Suspect]
     Active Substance: AZACITIDINE
     Route: 065
     Dates: start: 201604
  4. ZYCLOVIR [Concomitant]
     Indication: CYTOMEGALOVIRUS INFECTION
     Route: 065
  5. RAPAMUNE [Concomitant]
     Active Substance: SIROLIMUS
     Indication: PRODUCT USED FOR UNKNOWN INDICATION
     Route: 065
  6. AZACITIDINE INJECTABLE [Suspect]
     Active Substance: AZACITIDINE
     Route: 065
     Dates: start: 20160613
  7. AZACITIDINE INJECTABLE [Suspect]
     Active Substance: AZACITIDINE
     Indication: ACUTE MYELOID LEUKAEMIA
     Route: 041
     Dates: start: 201002, end: 201011
  8. DESTRAL [Concomitant]
     Indication: PRODUCT USED FOR UNKNOWN INDICATION
     Route: 065
  9. GRANISETRON [Concomitant]
     Active Substance: GRANISETRON
     Indication: PROPHYLAXIS OF NAUSEA AND VOMITING
     Route: 065
  10. DONOR LYMPHOCYTE INFUSION [Concomitant]
     Active Substance: LYMPHOCYTES
     Indication: ACUTE MYELOID LEUKAEMIA
     Route: 065
     Dates: start: 20100416

REACTIONS (26)
  - Inflammatory pain [Unknown]
  - Joint stiffness [Unknown]
  - Headache [Unknown]
  - Insomnia [Unknown]
  - Nausea [Unknown]
  - Thrombocytopenia [Unknown]
  - Haemoglobin decreased [Unknown]
  - Dyspnoea [Unknown]
  - Pyrexia [Unknown]
  - Graft versus host disease [Unknown]
  - Dizziness [Unknown]
  - Tremor [Unknown]
  - Full blood count decreased [Unknown]
  - Injection site erythema [Unknown]
  - Abdominal pain [Unknown]
  - Pain in extremity [Unknown]
  - Infusion site nodule [Unknown]
  - Gastrointestinal pain [Unknown]
  - Fatigue [Unknown]
  - Muscle spasms [Unknown]
  - Bone pain [Unknown]
  - Vertigo [Unknown]
  - Dizziness [Unknown]
  - Chills [Unknown]
  - Dyspnoea [Unknown]
  - Haematoma [Unknown]

NARRATIVE: CASE EVENT DATE: 20160606
